FAERS Safety Report 8970296 (Version 1)
Quarter: 2012Q4

REPORT INFORMATION
  Report Type: 
  Country: US (occurrence: US)
  Receive Date: 20121218
  Receipt Date: 20121218
  Transmission Date: 20130627
  Serious: No
  Sender: FDA-Public Use
  Company Number: US-BRISTOL-MYERS SQUIBB COMPANY-17038001

PATIENT

DRUGS (1)
  1. ABILIFY [Suspect]
     Dosage: Abilify 10mg;Lot no:2F71981,Exp:Jun2015
     Dates: start: 20121009

REACTIONS (1)
  - Circumstance or information capable of leading to medication error [Unknown]
